FAERS Safety Report 5620010-6 (Version None)
Quarter: 2008Q1

REPORT INFORMATION
  Report Type: 
  Country: None (occurrence: None)
  Receive Date: 20080208
  Receipt Date: 20080131
  Transmission Date: 20080703
  Serious: Yes (Hospitalization)
  Sender: FDA-Public Use
  Company Number: US-ROCHE-544986

PATIENT
  Age: 38 Year
  Sex: Female
  Weight: 77.1 kg

DRUGS (3)
  1. INTERFERON ALFA [Suspect]
     Indication: HEPATITIS C
     Route: 065
     Dates: start: 19960101
  2. PEGASYS [Suspect]
     Indication: HEPATITIS C
     Route: 058
     Dates: start: 20080111
  3. RIBAVIRIN [Suspect]
     Indication: HEPATITIS C
     Dosage: DOSING: 2 TABLETS IN MORNING; 3 IN EVENING
     Route: 048
     Dates: start: 20080111

REACTIONS (4)
  - FALL [None]
  - FATIGUE [None]
  - PYREXIA [None]
  - WRIST FRACTURE [None]
